FAERS Safety Report 12372406 (Version 1)
Quarter: 2016Q2

REPORT INFORMATION
  Report Type: Spontaneous
  Country: US (occurrence: US)
  Receive Date: 20160516
  Receipt Date: 20160516
  Transmission Date: 20160815
  Serious: Yes (Other)
  Sender: FDA-Public Use
  Company Number: ADR-2015-01408

PATIENT
  Age: 52 Year
  Sex: Female

DRUGS (12)
  1. COMPOUNDED BACLOFEN [Suspect]
     Active Substance: BACLOFEN
     Dosage: 39.97 MCG/DAY
     Route: 037
     Dates: start: 20150305
  2. DILAUDID [Suspect]
     Active Substance: HYDROMORPHONE HYDROCHLORIDE
     Dosage: 2.0001 MG/DAY
     Route: 037
     Dates: start: 20150209, end: 20150305
  3. BUPIVACAINE. [Suspect]
     Active Substance: BUPIVACAINE
     Dosage: 20.001 MG/DAY
     Route: 037
     Dates: start: 20150209, end: 20150305
  4. DILAUDID [Suspect]
     Active Substance: HYDROMORPHONE HYDROCHLORIDE
     Dosage: 3.0028 MG/DAY
     Route: 037
     Dates: end: 20150209
  5. COMPOUNDED BACLOFEN [Suspect]
     Active Substance: BACLOFEN
     Dosage: 66.67 MCG/DAY
     Route: 037
     Dates: start: 20150209, end: 20150305
  6. DILAUDID [Suspect]
     Active Substance: HYDROMORPHONE HYDROCHLORIDE
     Dosage: 1.9987 MG/DAY
     Route: 037
     Dates: start: 20150305
  7. CLONIDINE. [Suspect]
     Active Substance: CLONIDINE
     Dosage: 133.34 MCG/DAY
     Route: 037
     Dates: start: 20150209, end: 20150305
  8. BUPIVACAINE. [Suspect]
     Active Substance: BUPIVACAINE
     Dosage: 11.992 MG/DAY
     Route: 037
     Dates: start: 20150305
  9. COMPOUNDED BACLOFEN [Suspect]
     Active Substance: BACLOFEN
     Dosage: 100.09 MCG/DAY
     Route: 037
     Dates: end: 20150209
  10. BUPIVACAINE. [Suspect]
     Active Substance: BUPIVACAINE
     Dosage: 30.028 MG/DAY
     Route: 037
     Dates: end: 20150209
  11. CLONIDINE. [Suspect]
     Active Substance: CLONIDINE
     Dosage: 200.18 MCG/DAY
     Route: 037
     Dates: end: 20150209
  12. CLONIDINE. [Suspect]
     Active Substance: CLONIDINE
     Dosage: 159.9 MCG/DAY
     Route: 037
     Dates: start: 20150305

REACTIONS (3)
  - Drug withdrawal syndrome [Recovered/Resolved]
  - Hypoaesthesia [Recovered/Resolved]
  - Asthenia [Recovered/Resolved]

NARRATIVE: CASE EVENT DATE: 20150209
